FAERS Safety Report 9100735 (Version 2)
Quarter: 2013Q2

REPORT INFORMATION
  Report Type: Spontaneous
  Country: US (occurrence: US)
  Receive Date: 20130215
  Receipt Date: 20130401
  Transmission Date: 20140414
  Serious: No
  Sender: FDA-Public Use
  Company Number: US-ASTRAZENECA-2013SE08875

PATIENT
  Age: 76 Year
  Sex: Female
  Weight: 64.9 kg

DRUGS (20)
  1. SYMBICORT [Suspect]
     Indication: ASTHMA
     Dosage: 160/4.5 MCG,TWO PUFFS,TWO TIMES A DAY
     Route: 055
     Dates: start: 2008
  2. SYMBICORT [Suspect]
     Indication: ASTHMA
     Dosage: 160/4.5 MCG, AS NEEDED
     Route: 055
  3. SOLAIR [Concomitant]
     Indication: ASTHMA
     Dosage: EVERY MONTH
  4. ZETIA [Concomitant]
     Indication: BLOOD CHOLESTEROL ABNORMAL
     Route: 048
  5. BABY ASPIRIN [Concomitant]
     Indication: BLOOD PRESSURE ABNORMAL
     Route: 048
  6. SINGULAIR [Concomitant]
     Indication: ASTHMA
     Route: 048
  7. LEVOXYL [Concomitant]
     Indication: THYROID DISORDER
     Route: 048
  8. VITAMIN K [Concomitant]
     Route: 048
  9. VITAMINS B6 [Concomitant]
     Route: 048
  10. VITAMIN B12 [Concomitant]
     Route: 048
  11. OSCAL [Concomitant]
     Route: 048
  12. PRESERVISION  EYE VITAMINS [Concomitant]
     Indication: MACULAR DEGENERATION
     Route: 048
  13. FISH OIL [Concomitant]
     Route: 048
  14. TRAZADONE [Concomitant]
     Route: 048
  15. MIRAPIX [Concomitant]
     Route: 048
  16. TRIAMTERENE HCT [Concomitant]
     Indication: BLOOD PRESSURE ABNORMAL
     Route: 048
  17. DIOVAN [Concomitant]
     Indication: BLOOD PRESSURE ABNORMAL
     Route: 048
  18. ALLEGRA-D [Concomitant]
     Indication: ASTHMA
     Route: 048
  19. FOLIC ACID [Concomitant]
     Route: 048
  20. INJECTIONS [Concomitant]
     Dosage: MONTHLY

REACTIONS (5)
  - Wheezing [Unknown]
  - Dyspnoea [Unknown]
  - Cough [Unknown]
  - Drug dose omission [Unknown]
  - Intentional drug misuse [Unknown]
